FAERS Safety Report 15862495 (Version 5)
Quarter: 2020Q2

REPORT INFORMATION
  Report Type: Spontaneous
  Country: CN (occurrence: CN)
  Receive Date: 20190124
  Receipt Date: 20200505
  Transmission Date: 20200713
  Serious: Yes (Hospitalization)
  Sender: FDA-Public Use
  Company Number: CN-CELGENEUS-CHN-20190104583

PATIENT
  Age: 71 Year
  Sex: Female
  Weight: 51 kg

DRUGS (13)
  1. POTASSIUM CHLORIDE. [Concomitant]
     Active Substance: POTASSIUM CHLORIDE
     Indication: HYPOKALAEMIA
     Dosage: 3 GRAM
     Route: 048
     Dates: start: 20181205, end: 20181208
  2. POTASSIUM CHLORIDE. [Concomitant]
     Active Substance: POTASSIUM CHLORIDE
     Dosage: 1 GRAM
     Route: 048
     Dates: start: 20181209, end: 20181211
  3. HYDROTALCITE [Concomitant]
     Active Substance: HYDROTALCITE
     Indication: ABDOMINAL DISCOMFORT
     Dosage: 500 MILLIGRAM
     Route: 048
     Dates: start: 20181227, end: 20190108
  4. VENETOCLAX. [Concomitant]
     Active Substance: VENETOCLAX
     Dosage: 100 MILLIGRAM
     Route: 048
     Dates: start: 20181212, end: 20181212
  5. VENETOCLAX. [Concomitant]
     Active Substance: VENETOCLAX
     Dosage: 400 MILLIGRAM
     Route: 048
     Dates: start: 20181214
  6. POTASSIUM CHLORIDE. [Concomitant]
     Active Substance: POTASSIUM CHLORIDE
     Dosage: 3 GRAM
     Route: 048
     Dates: start: 20181212, end: 20181219
  7. AZACITIDINE. [Suspect]
     Active Substance: AZACITIDINE
     Indication: ACUTE MYELOID LEUKAEMIA
     Dosage: 75 MILLIGRAM/SQ. METER
     Route: 058
     Dates: start: 20181210
  8. VENETOCLAX. [Concomitant]
     Active Substance: VENETOCLAX
     Dosage: 200 MILLIGRAM
     Route: 048
     Dates: start: 20181213, end: 20181213
  9. ALPRAZOLAM. [Concomitant]
     Active Substance: ALPRAZOLAM
     Indication: INSOMNIA
     Dosage: 400 MICROGRAM
     Route: 048
     Dates: start: 20181130, end: 20190108
  10. PACKED RED BLOOD CELLS [Concomitant]
     Active Substance: HUMAN RED BLOOD CELL
     Indication: PRODUCT USED FOR UNKNOWN INDICATION
     Dosage: 2 UNITS
     Route: 065
     Dates: start: 20190108
  11. ONDANSETRON [Concomitant]
     Active Substance: ONDANSETRON
     Indication: PROPHYLAXIS OF NAUSEA AND VOMITING
     Dosage: 4 MILLIGRAM
     Route: 041
     Dates: start: 20181227, end: 20190108
  12. OXYGEN. [Concomitant]
     Active Substance: OXYGEN
     Indication: ANAEMIA
     Route: 055
     Dates: start: 20181210, end: 20190110
  13. VENETOCLAX. [Concomitant]
     Active Substance: VENETOCLAX
     Indication: ACUTE MYELOID LEUKAEMIA
     Dosage: 100 MILLIGRAM
     Route: 048
     Dates: start: 20181210, end: 20181210

REACTIONS (1)
  - Transfusion reaction [Recovered/Resolved]

NARRATIVE: CASE EVENT DATE: 20190108
